FAERS Safety Report 20372557 (Version 5)
Quarter: 2022Q1

REPORT INFORMATION
  Report Type: Report from Study
  Country: US (occurrence: US)
  Receive Date: 20220125
  Receipt Date: 20220304
  Transmission Date: 20220423
  Serious: Yes (Hospitalization)
  Sender: FDA-Public Use
  Company Number: US-ABBVIE-22K-163-4227634-00

PATIENT
  Age: 62 Year
  Sex: Female

DRUGS (2)
  1. IMBRUVICA [Suspect]
     Active Substance: IBRUTINIB
     Indication: Chronic lymphocytic leukaemia
     Route: 048
     Dates: start: 20210702, end: 202112
  2. IMBRUVICA [Suspect]
     Active Substance: IBRUTINIB
     Indication: Chronic lymphocytic leukaemia
     Route: 048

REACTIONS (11)
  - Tachycardia [Not Recovered/Not Resolved]
  - Atrial fibrillation [Recovering/Resolving]
  - White blood cell count decreased [Unknown]
  - Illness [Unknown]
  - Feeling abnormal [Unknown]
  - Blood pressure diastolic increased [Unknown]
  - Dyspareunia [Not Recovered/Not Resolved]
  - Hyperhidrosis [Unknown]
  - Vomiting [Recovered/Resolved]
  - Nausea [Unknown]
  - Pain [Not Recovered/Not Resolved]

NARRATIVE: CASE EVENT DATE: 20220101
